FAERS Safety Report 8078700-4 (Version None)
Quarter: 2012Q1

REPORT INFORMATION
  Report Type: 
  Country: None (occurrence: None)
  Receive Date: 20120124
  Receipt Date: 20120112
  Transmission Date: 20120608
  Serious: Yes (Other)
  Sender: FDA-Public Use
  Company Number: 2012AP000093

PATIENT
  Age: 83 Year
  Sex: Male

DRUGS (13)
  1. LEVETIRACETAM [Suspect]
     Indication: STATUS EPILEPTICUS
     Dosage: 250 MG;PO;BID ; 500 MG;PO;BID ; 500 MG;PO;QD
     Route: 048
     Dates: start: 20111103, end: 20111122
  2. LEVETIRACETAM [Suspect]
     Indication: GRAND MAL CONVULSION
     Dosage: 250 MG;PO;BID ; 500 MG;PO;BID ; 500 MG;PO;QD
     Route: 048
     Dates: start: 20111103, end: 20111122
  3. LEVETIRACETAM [Suspect]
     Indication: STATUS EPILEPTICUS
     Dosage: 250 MG;PO;BID ; 500 MG;PO;BID ; 500 MG;PO;QD
     Route: 048
     Dates: start: 20111123
  4. LEVETIRACETAM [Suspect]
     Indication: GRAND MAL CONVULSION
     Dosage: 250 MG;PO;BID ; 500 MG;PO;BID ; 500 MG;PO;QD
     Route: 048
     Dates: start: 20111123
  5. LEVETIRACETAM [Suspect]
     Indication: STATUS EPILEPTICUS
     Dosage: 250 MG;PO;BID ; 500 MG;PO;BID ; 500 MG;PO;QD
     Route: 048
     Dates: start: 20111020, end: 20111102
  6. LEVETIRACETAM [Suspect]
     Indication: GRAND MAL CONVULSION
     Dosage: 250 MG;PO;BID ; 500 MG;PO;BID ; 500 MG;PO;QD
     Route: 048
     Dates: start: 20111020, end: 20111102
  7. XALACOM (XALACOM) [Concomitant]
  8. PHENOBARBITAL TAB [Concomitant]
  9. ENOXAPARIN SODIUM [Concomitant]
  10. FORTISIP (FORTISIP) [Concomitant]
  11. SENNA /00142201/ (SENNA ALEXANDRINA) [Concomitant]
  12. PHENYTOIN [Concomitant]
  13. SIMVASTATIN [Concomitant]

REACTIONS (4)
  - BLOOD SODIUM INCREASED [None]
  - BLOOD UREA INCREASED [None]
  - NEUTROPENIA [None]
  - THROMBOCYTOPENIA [None]
